FAERS Safety Report 16699253 (Version 1)
Quarter: 2019Q3

REPORT INFORMATION
  Report Type: Spontaneous
  Country: TW (occurrence: TW)
  Receive Date: 20190813
  Receipt Date: 20190813
  Transmission Date: 20191004
  Serious: Yes (Other)
  Sender: FDA-Public Use
  Company Number: PHHY2012TW144044

PATIENT
  Age: 17 Year
  Sex: Male

DRUGS (2)
  1. TEGRETAL [Suspect]
     Active Substance: CARBAMAZEPINE
     Indication: PRODUCT USED FOR UNKNOWN INDICATION
     Route: 065
  2. AFINITOR [Suspect]
     Active Substance: EVEROLIMUS
     Indication: PRODUCT USED FOR UNKNOWN INDICATION
     Dosage: 2.5 MG, QID
     Route: 065

REACTIONS (4)
  - Disease progression [Unknown]
  - Product dose omission [Unknown]
  - Seizure [Unknown]
  - Tuberous sclerosis complex [Unknown]

NARRATIVE: CASE EVENT DATE: 201108
